FAERS Safety Report 14714338 (Version 2)
Quarter: 2018Q2

REPORT INFORMATION
  Report Type: Spontaneous
  Country: ES (occurrence: ES)
  Receive Date: 20180404
  Receipt Date: 20180411
  Transmission Date: 20180711
  Serious: Yes (Hospitalization, Other)
  Sender: FDA-Public Use
  Company Number: ES-009507513-1803ESP011528

PATIENT
  Age: 74 Year
  Sex: Female
  Weight: 55 kg

DRUGS (4)
  1. ZEPATIER [Suspect]
     Active Substance: ELBASVIR\GRAZOPREVIR
     Indication: HEPATITIS C
     Dosage: 1 TABLET, DAILY
     Route: 048
     Dates: start: 20180213
  2. DIGOXIN. [Interacting]
     Active Substance: DIGOXIN
     Dosage: UNK
  3. SINTROM [Interacting]
     Active Substance: ACENOCOUMAROL
     Dosage: 33 MG, QW
  4. SINTROM [Interacting]
     Active Substance: ACENOCOUMAROL
     Indication: ANTICOAGULANT THERAPY
     Dosage: 18 MG, QW

REACTIONS (4)
  - Drug interaction [Unknown]
  - International normalised ratio decreased [Unknown]
  - Rectal haemorrhage [Recovered/Resolved]
  - Cardioactive drug level decreased [Unknown]

NARRATIVE: CASE EVENT DATE: 201802
